FAERS Safety Report 9946631 (Version 1)
Quarter: 2014Q1

REPORT INFORMATION
  Report Type: Report from Study
  Country: US (occurrence: US)
  Receive Date: 20140303
  Receipt Date: 20140303
  Transmission Date: 20141002
  Serious: No
  Sender: FDA-Public Use
  Company Number: US-ABBVIE-13P-163-1063294-00

PATIENT
  Sex: Female
  Weight: 127.12 kg

DRUGS (3)
  1. HUMIRA [Suspect]
     Indication: RHEUMATOID ARTHRITIS
     Dates: start: 201209
  2. UNKNOWN BLOOD PRESSURE MEDICATION [Concomitant]
     Indication: BLOOD PRESSURE
  3. UNKNOWN WATER PILL [Concomitant]
     Indication: FLUID RETENTION

REACTIONS (1)
  - Gait disturbance [Not Recovered/Not Resolved]
